FAERS Safety Report 5893465-X (Version None)
Quarter: 2008Q3

REPORT INFORMATION
  Report Type: 
  Country: None (occurrence: None)
  Receive Date: 20080922
  Receipt Date: 20080922
  Transmission Date: 20090109
  Serious: Yes (Death)
  Sender: FDA-Public Use
  Company Number: None

PATIENT
  Sex: Male
  Weight: 78.8 kg

DRUGS (5)
  1. XIGRIS [Suspect]
     Indication: CEREBROVASCULAR ACCIDENT
     Dosage: 10MCG/KG, XL, IV
     Route: 042
  2. SIMVASTATIN [Concomitant]
  3. NICODERM [Concomitant]
  4. ASPIRIN [Concomitant]
  5. HEPARIN [Concomitant]

REACTIONS (6)
  - ASPIRATION [None]
  - BRAIN HERNIATION [None]
  - LETHARGY [None]
  - PYREXIA [None]
  - UNRESPONSIVE TO STIMULI [None]
  - WHITE BLOOD CELL COUNT INCREASED [None]
